FAERS Safety Report 9247759 (Version 1)
Quarter: 2013Q2

REPORT INFORMATION
  Report Type: Spontaneous
  Country: FR (occurrence: FR)
  Receive Date: 20130423
  Receipt Date: 20130423
  Transmission Date: 20140414
  Serious: Yes (Disabling, Other)
  Sender: FDA-Public Use
  Company Number: FR-PFIZER INC-2013123250

PATIENT
  Age: 11 Year
  Sex: Male
  Weight: 25.4 kg

DRUGS (6)
  1. NEURONTIN [Suspect]
     Indication: EPILEPSY
     Dosage: 300 MG, 2X/DAY
     Route: 048
     Dates: start: 2001
  2. KEPPRA [Suspect]
     Indication: EPILEPSY
     Dosage: 300 MG, 2X/DAY
     Route: 048
     Dates: start: 20120221, end: 201212
  3. DEPAKINE [Suspect]
     Indication: EPILEPSY
     Dosage: 300 MG, 2X/DAY
     Route: 048
     Dates: start: 2001
  4. DEPAKINE [Suspect]
     Dosage: 750 MG DAILY (250 MG IN THE MORNING, 500 MG IN THE EVENING)
     Route: 048
  5. URBANYL [Suspect]
     Indication: EPILEPSY
     Dosage: 5 MG DAILY
     Route: 048
     Dates: start: 2001
  6. BOTOX [Suspect]
     Indication: SALIVARY HYPERSECRETION
     Dosage: UNK
     Route: 051
     Dates: start: 20120315, end: 20120315

REACTIONS (4)
  - Gingival hyperplasia [Recovering/Resolving]
  - Dyspnoea [Unknown]
  - Feeding disorder [Unknown]
  - Epilepsy [Unknown]
